FAERS Safety Report 8142188-5 (Version None)
Quarter: 2012Q1

REPORT INFORMATION
  Report Type: 
  Country: None (occurrence: None)
  Receive Date: 20120216
  Receipt Date: 20120208
  Transmission Date: 20120608
  Serious: Yes (Other)
  Sender: FDA-Public Use
  Company Number: US-ROCHE-1030932

PATIENT
  Sex: Female
  Weight: 57.204 kg

DRUGS (4)
  1. ACCUTANE [Suspect]
     Indication: ACNE
     Route: 048
     Dates: start: 19971202, end: 19980401
  2. ACCUTANE [Suspect]
     Dates: start: 20000501, end: 20000601
  3. ACCUTANE [Suspect]
     Dates: start: 19990121, end: 19990501
  4. ACCUTANE [Suspect]
     Dates: start: 20000212

REACTIONS (6)
  - PROCTITIS [None]
  - OSTEOPENIA [None]
  - CROHN'S DISEASE [None]
  - COLITIS ULCERATIVE [None]
  - EMOTIONAL DISTRESS [None]
  - INFLAMMATORY BOWEL DISEASE [None]
